FAERS Safety Report 6017222-9 (Version None)
Quarter: 2008Q4

REPORT INFORMATION
  Report Type: 
  Country: None (occurrence: None)
  Receive Date: 20081219
  Receipt Date: 20081209
  Transmission Date: 20090506
  Serious: Yes (Other)
  Sender: FDA-Public Use
  Company Number: 2008US003205

PATIENT
  Age: 17 Year

DRUGS (4)
  1. AMBISOME [Suspect]
     Indication: FUNGAL ENDOCARDITIS
     Dates: start: 20081030
  2. DIGOXIN [Concomitant]
  3. LASIX [Concomitant]
  4. VORICONAZOLE (VORICONAZOLE) [Concomitant]

REACTIONS (1)
  - BLOOD TRIGLYCERIDES INCREASED [None]
